FAERS Safety Report 16315640 (Version 1)
Quarter: 2019Q2

REPORT INFORMATION
  Report Type: Spontaneous
  Country: CN (occurrence: CN)
  Receive Date: 20190515
  Receipt Date: 20190515
  Transmission Date: 20190711
  Serious: Yes (Other)
  Sender: FDA-Public Use
  Company Number: CN-ASTRAZENECA-2019SE69903

PATIENT
  Age: 63 Year
  Sex: Male

DRUGS (2)
  1. GEFITINIB. [Suspect]
     Active Substance: GEFITINIB
     Indication: NON-SMALL CELL LUNG CANCER
     Route: 048
     Dates: start: 20151222, end: 201601
  2. GEFITINIB. [Suspect]
     Active Substance: GEFITINIB
     Indication: METASTASIS
     Route: 048
     Dates: start: 20151222, end: 201601

REACTIONS (1)
  - Drug resistance [Unknown]
